FAERS Safety Report 18410532 (Version 3)
Quarter: 2021Q1

REPORT INFORMATION
  Report Type: Spontaneous
  Country: US (occurrence: US)
  Receive Date: 20201021
  Receipt Date: 20210126
  Transmission Date: 20210419
  Serious: Yes (Hospitalization)
  Sender: FDA-Public Use
  Company Number: US-PFIZER INC-2020406752

PATIENT
  Age: 83 Year
  Sex: Female
  Weight: 62.6 kg

DRUGS (1)
  1. VYNDAQEL [Suspect]
     Active Substance: TAFAMIDIS MEGLUMINE
     Indication: CARDIAC DISORDER
     Dosage: 80 MG, DAILY [20 MG. 4 CAPSULES DAILY]
     Route: 048

REACTIONS (3)
  - Off label use [Unknown]
  - Cholecystitis infective [Recovered/Resolved with Sequelae]
  - Abdominal pain upper [Unknown]

NARRATIVE: CASE EVENT DATE: 20200929
